FAERS Safety Report 9350057 (Version 1)
Quarter: 2013Q2

REPORT INFORMATION
  Report Type: Spontaneous
  Country: US (occurrence: US)
  Receive Date: 20130615
  Receipt Date: 20130615
  Transmission Date: 20140414
  Serious: No
  Sender: FDA-Public Use
  Company Number: US-009507513-1306USA004069

PATIENT
  Sex: Female

DRUGS (1)
  1. GANIRELIX ACETATE INJECTION [Suspect]
     Dosage: STRENGTH: 250 (UNITS UNSPECIFIED) ONE SYRINGE INJECTION
     Route: 058
     Dates: start: 20130516

REACTIONS (3)
  - Needle issue [Unknown]
  - Product quality issue [Unknown]
  - No adverse event [Unknown]
